FAERS Safety Report 14677368 (Version 1)
Quarter: 2018Q1

REPORT INFORMATION
  Report Type: Report from Study
  Country: JP (occurrence: JP)
  Receive Date: 20180325
  Receipt Date: 20180325
  Transmission Date: 20180509
  Serious: Yes (Death, Life-Threatening)
  Sender: FDA-Public Use
  Company Number: JP-B.I. PHARMACEUTICALS,INC./RIDGEFIELD-2018-NB-001437

PATIENT
  Age: 88 Year
  Sex: Female
  Weight: 47 kg

DRUGS (5)
  1. WARFARIN [Concomitant]
     Active Substance: WARFARIN
     Indication: PRODUCT USED FOR UNKNOWN INDICATION
     Route: 065
  2. BIBF 1120 [Suspect]
     Active Substance: NINTEDANIB
     Indication: IDIOPATHIC PULMONARY FIBROSIS
     Route: 048
     Dates: start: 20160329, end: 20160407
  3. METHYLPREDNISOLONE. [Concomitant]
     Active Substance: METHYLPREDNISOLONE
     Indication: IDIOPATHIC PULMONARY FIBROSIS
     Route: 065
     Dates: start: 20160328
  4. PREDONINE [Concomitant]
     Active Substance: PREDNISOLONE
     Indication: IDIOPATHIC PULMONARY FIBROSIS
     Route: 065
     Dates: end: 20160407
  5. THYRADIN [Concomitant]
     Active Substance: LEVOTHYROXINE
     Indication: PRODUCT USED FOR UNKNOWN INDICATION
     Route: 065

REACTIONS (3)
  - Idiopathic pulmonary fibrosis [Fatal]
  - Idiopathic pulmonary fibrosis [Unknown]
  - Drug effect incomplete [Unknown]

NARRATIVE: CASE EVENT DATE: 20160408
